FAERS Safety Report 9443153 (Version 4)
Quarter: 2013Q3

REPORT INFORMATION
  Report Type: Spontaneous
  Country: IN (occurrence: IN)
  Receive Date: 20130806
  Receipt Date: 20130823
  Transmission Date: 20140515
  Serious: Yes (Other)
  Sender: FDA-Public Use
  Company Number: IN-PFIZER INC-2013223159

PATIENT
  Age: 40 Year
  Sex: Male

DRUGS (7)
  1. DOXORUBICIN [Suspect]
     Indication: B-CELL LYMPHOMA STAGE IV
     Dosage: 200 MG/M2, UNK
     Route: 042
     Dates: start: 201303, end: 201307
  2. RITUXIMAB [Concomitant]
     Indication: B-CELL LYMPHOMA STAGE IV
     Dosage: 375 MG/M2, UNK
  3. CYCLOPHOSPHAMIDE [Concomitant]
     Indication: B-CELL LYMPHOMA STAGE IV
     Dosage: 500 MG, UNK
  4. CYCLOPHOSPHAMIDE [Concomitant]
     Dosage: 750 MG/M2, UNK
  5. VINCRISTINE [Concomitant]
     Indication: B-CELL LYMPHOMA STAGE IV
     Dosage: 1 MG, UNK
  6. VINCRISTINE [Concomitant]
     Dosage: 1.4 MG/M2, UNK
  7. PREDNISOLONE [Concomitant]
     Indication: B-CELL LYMPHOMA STAGE IV
     Dosage: 100 MG, UNK

REACTIONS (11)
  - Cardiac failure congestive [Not Recovered/Not Resolved]
  - Cardiomyopathy [Not Recovered/Not Resolved]
  - Pancytopenia [Recovered/Resolved]
  - Pancytopenia [Unknown]
  - Infection [Recovered/Resolved]
  - Guillain-Barre syndrome [Not Recovered/Not Resolved]
  - Hemiparesis [Not Recovered/Not Resolved]
  - CSF glucose decreased [Not Recovered/Not Resolved]
  - CSF protein increased [Not Recovered/Not Resolved]
  - Blood sodium decreased [Not Recovered/Not Resolved]
  - Blood chloride decreased [Not Recovered/Not Resolved]
